FAERS Safety Report 4757237-1 (Version None)
Quarter: 2005Q3

REPORT INFORMATION
  Report Type: 
  Country: None (occurrence: None)
  Receive Date: 20050829
  Receipt Date: 20050817
  Transmission Date: 20060218
  Serious: Yes (Other)
  Sender: FDA-Public Use
  Company Number: 2005116882

PATIENT
  Age: 14 Year
  Sex: Female
  Weight: 55.7924 kg

DRUGS (1)
  1. BENADRYL [Suspect]
     Indication: HYPERSENSITIVITY
     Dosage: 1 KAPSEAL ONCE,ORAL
     Route: 048
     Dates: start: 20050816, end: 20050816

REACTIONS (1)
  - HYPERSENSITIVITY [None]
